FAERS Safety Report 11241101 (Version 3)
Quarter: 2015Q3

REPORT INFORMATION
  Report Type: Spontaneous
  Country: US (occurrence: US)
  Receive Date: 20150706
  Receipt Date: 20150729
  Transmission Date: 20151125
  Serious: No
  Sender: FDA-Public Use
  Company Number: US-PFIZER INC-2015220685

PATIENT
  Age: 49 Year
  Sex: Male

DRUGS (5)
  1. TRAMADOL. [Suspect]
     Active Substance: TRAMADOL
     Dosage: UNK
  2. LOVASTATIN. [Suspect]
     Active Substance: LOVASTATIN
     Dosage: UNK
  3. EFFEXOR [Suspect]
     Active Substance: VENLAFAXINE HYDROCHLORIDE
     Dosage: UNK
  4. REBIF [Suspect]
     Active Substance: INTERFERON BETA-1A
     Dosage: UNK
  5. LISINOPRIL. [Suspect]
     Active Substance: LISINOPRIL
     Dosage: UNK

REACTIONS (1)
  - Drug hypersensitivity [Unknown]
